FAERS Safety Report 7159643-7 (Version None)
Quarter: 2010Q4

REPORT INFORMATION
  Report Type: 
  Country: None (occurrence: None)
  Receive Date: 20101214
  Receipt Date: 20101027
  Transmission Date: 20110411
  Serious: No
  Sender: FDA-Public Use
  Company Number: US-ASTRAZENECA-2010SE51034

PATIENT
  Sex: Male
  Weight: 120.2 kg

DRUGS (6)
  1. CRESTOR [Suspect]
     Indication: BLOOD CHOLESTEROL INCREASED
     Route: 048
     Dates: start: 20100501, end: 20101025
  2. COREG [Concomitant]
  3. EXFORGE [Concomitant]
  4. FLOVENT [Concomitant]
  5. LOVAZA [Concomitant]
  6. ASPIRIN [Concomitant]

REACTIONS (4)
  - FATIGUE [None]
  - MUSCULAR WEAKNESS [None]
  - MYALGIA [None]
  - SENSATION OF HEAVINESS [None]
